FAERS Safety Report 18558570 (Version 2)
Quarter: 2020Q4

REPORT INFORMATION
  Report Type: Spontaneous
  Country: RO (occurrence: RO)
  Receive Date: 20201130
  Receipt Date: 20201210
  Transmission Date: 20210114
  Serious: No
  Sender: FDA-Public Use
  Company Number: RO-BRISTOL-MYERS SQUIBB COMPANY-BMS-2020-097579

PATIENT
  Age: 46 Year
  Sex: Male

DRUGS (13)
  1. CALCIUM FOLINATE [Concomitant]
     Active Substance: LEUCOVORIN CALCIUM
     Indication: PRODUCT USED FOR UNKNOWN INDICATION
     Dosage: UNK
     Route: 065
  2. CYTOSAR [Suspect]
     Active Substance: CYTARABINE
     Indication: PROPHYLACTIC CHEMOTHERAPY
     Dosage: 40 MILLIGRAM, PROPHYLACTIC INTRATHECAL ADMINISTRATION OF CHEMOTHERAPY (CYTOSAR 40 MG) WAS DONE ON DA
     Route: 037
  3. METHOTREXATE. [Suspect]
     Active Substance: METHOTREXATE
     Indication: CHRONIC MYELOID LEUKAEMIA
     Dosage: 1900 MILLIGRAM, TOTAL, 1900 MG ON DAY 1
     Route: 065
  4. DEXAMETHASONE. [Suspect]
     Active Substance: DEXAMETHASONE
     Dosage: PROPHYLACTIC INTRATHECAL ADMINISTRATION OF CHEMOTHERAPY (DEXAMETHASONE 4 MG) WAS DONE ON DAY 15 OF T
     Route: 037
  5. HYDREA [Suspect]
     Active Substance: HYDROXYUREA
     Indication: CHRONIC MYELOID LEUKAEMIA
     Dosage: 1000 MILLIGRAM, BID
  6. IMATINIB. [Suspect]
     Active Substance: IMATINIB MESYLATE
     Indication: CHRONIC MYELOID LEUKAEMIA
     Dosage: 800 MILLIGRAM, QCYCLE, IMATINIB 800 MG DAILY FROM DAY 1 TO DAY 28
     Route: 048
  7. METHOTREXATE. [Suspect]
     Active Substance: METHOTREXATE
     Dosage: UNK
     Route: 037
  8. DEXAMETHASONE. [Suspect]
     Active Substance: DEXAMETHASONE
     Indication: PROPHYLACTIC CHEMOTHERAPY
     Dosage: 40 MG ON DAY 1-2, 8-9, 15-16 AND 22-23
     Route: 037
  9. CYTOSAR [Suspect]
     Active Substance: CYTARABINE
     Dosage: 5700 MILLIGRAM, BID, 5700 MG TWICE DAILY ON DAYS 2 AND 3
     Route: 065
  10. VINCRISTINE [Suspect]
     Active Substance: VINCRISTINE
     Indication: CHRONIC MYELOID LEUKAEMIA
     Dosage: 2 MILLIGRAM, QWK, 2 MG ON DAYS 1, 8, 15 AND 22
     Route: 065
  11. ALLOPURINOL. [Suspect]
     Active Substance: ALLOPURINOL
     Indication: HYPERURICAEMIA
     Dosage: 100 MILLIGRAM, BID
     Route: 065
  12. METHOTREXATE. [Suspect]
     Active Substance: METHOTREXATE
     Dosage: 15 MILLIGRAM, PROPHYLACTIC INTRATHECAL ADMINISTRATION OF CHEMOTHERAPY (METHOTREXATE 15 MG) WAS DONE
     Route: 037
  13. GRANULOCYTE COLONY STIMULATING FACTOR [Concomitant]
     Active Substance: GRANULOCYTE COLONY-STIMULATING FACTOR NOS
     Indication: APLASIA
     Dosage: UNK
     Route: 065

REACTIONS (1)
  - No adverse event [Unknown]
